FAERS Safety Report 9669597 (Version 1)
Quarter: 2013Q4

REPORT INFORMATION
  Report Type: Report from Study
  Country: BR (occurrence: BR)
  Receive Date: 20131105
  Receipt Date: 20131105
  Transmission Date: 20140711
  Serious: Yes (Other)
  Sender: FDA-Public Use
  Company Number: PHHY2013BR124934

PATIENT
  Sex: Female
  Weight: 89 kg

DRUGS (4)
  1. DIOVAN HCT [Suspect]
     Indication: HYPERTENSION
     Dosage: 1 DF, QD (IN THE MORNING IN FASTING)
  2. INSULIN [Suspect]
     Indication: DIABETES MELLITUS
     Dosage: UNK UKN, UNK
  3. ANLO [Suspect]
     Dosage: UNK UKN, UNK
  4. LANTUS [Suspect]
     Dosage: UNK UKN, UNK

REACTIONS (5)
  - Blindness unilateral [Unknown]
  - Diabetic nephropathy [Unknown]
  - Diabetic retinopathy [Unknown]
  - Retinal disorder [Unknown]
  - Gait disturbance [Unknown]
